FAERS Safety Report 7676696-8 (Version None)
Quarter: 2011Q3

REPORT INFORMATION
  Report Type: 
  Country: None (occurrence: None)
  Receive Date: 20110811
  Receipt Date: 20110808
  Transmission Date: 20111222
  Serious: Yes (Death, Hospitalization, Other)
  Sender: FDA-Public Use
  Company Number: US-AMGEN-USASP2011011287

PATIENT
  Age: 68 Year
  Sex: Female

DRUGS (5)
  1. LASIX [Concomitant]
     Dosage: 20 MG, UNK
     Route: 048
  2. POTASSIUM CHLORIDE [Concomitant]
     Dosage: 10 MEQ, UNK
     Route: 048
  3. FOLIC ACID [Concomitant]
     Dosage: 1 MG, UNK
     Route: 048
  4. NPLATE [Suspect]
     Indication: IDIOPATHIC THROMBOCYTOPENIC PURPURA
     Dosage: 1 A?G/KG, ONE TIME DOSE
     Dates: start: 20110216, end: 20110226
  5. CYCLOSPORINE [Concomitant]

REACTIONS (4)
  - BONE MARROW FAILURE [None]
  - HYPOXIA [None]
  - MULTIPLE MYELOMA [None]
  - APLASTIC ANAEMIA [None]
